FAERS Safety Report 7479621-8 (Version None)
Quarter: 2011Q2

REPORT INFORMATION
  Report Type: 
  Country: None (occurrence: None)
  Receive Date: 20110513
  Receipt Date: 20110508
  Transmission Date: 20111010
  Serious: Yes (Life-Threatening)
  Sender: FDA-Public Use
  Company Number: AT-ALLERGAN-1106315US

PATIENT
  Age: 66 Year
  Sex: Male

DRUGS (4)
  1. MARCUMAR [Concomitant]
  2. CONCOR [Concomitant]
  3. BIMATOPROST AND TIMOLOL MALEATE [Suspect]
     Indication: OPEN ANGLE GLAUCOMA
     Dosage: 1 GTT, QD
     Route: 047
     Dates: start: 20110317, end: 20110321
  4. AEROCORTIN [Concomitant]

REACTIONS (1)
  - DYSPNOEA [None]
